FAERS Safety Report 21005882 (Version 2)
Quarter: 2022Q3

REPORT INFORMATION
  Report Type: Report from Study
  Country: IT (occurrence: IT)
  Receive Date: 20220624
  Receipt Date: 20220708
  Transmission Date: 20221027
  Serious: Yes (Hospitalization)
  Sender: FDA-Public Use
  Company Number: IT-TEVA-2022-IT-2047501

PATIENT
  Age: 73 Year
  Sex: Male

DRUGS (7)
  1. AMIKACIN [Suspect]
     Active Substance: AMIKACIN
     Indication: Skin bacterial infection
     Route: 065
  2. AMIKACIN [Suspect]
     Active Substance: AMIKACIN
     Indication: Ecthyma
  3. AMIKACIN [Suspect]
     Active Substance: AMIKACIN
     Indication: Pseudomonas infection
  4. AMIKACIN [Suspect]
     Active Substance: AMIKACIN
     Indication: Bacterial infection
  5. CEFIDEROCOL [Suspect]
     Active Substance: CEFIDEROCOL
     Indication: Skin bacterial infection
     Dosage: 6 GRAM DAILY;
     Route: 065
  6. CEFIDEROCOL [Suspect]
     Active Substance: CEFIDEROCOL
     Indication: Pseudomonas infection
  7. CEFIDEROCOL [Suspect]
     Active Substance: CEFIDEROCOL
     Indication: Bacterial infection

REACTIONS (2)
  - Toxic encephalopathy [Unknown]
  - Off label use [Unknown]
